FAERS Safety Report 4468197-5 (Version None)
Quarter: 2004Q4

REPORT INFORMATION
  Report Type: 
  Country: None (occurrence: None)
  Receive Date: 20041007
  Receipt Date: 20041001
  Transmission Date: 20050328
  Serious: Yes (Hospitalization)
  Sender: FDA-Public Use
  Company Number: AU-MERCK-0410AUS00006

PATIENT
  Age: 41 Year
  Sex: Male

DRUGS (3)
  1. GLICLAZIDE [Concomitant]
     Indication: DIABETES MELLITUS
     Route: 065
  2. METFORMIN HYDROCHLORIDE [Concomitant]
     Indication: DIABETES MELLITUS
     Route: 065
  3. VIOXX [Suspect]
     Route: 048
     Dates: start: 20010101

REACTIONS (1)
  - MYOCARDIAL INFARCTION [None]
